FAERS Safety Report 6440522-5 (Version None)
Quarter: 2009Q4

REPORT INFORMATION
  Report Type: 
  Country: None (occurrence: None)
  Receive Date: 20091113
  Receipt Date: 20091106
  Transmission Date: 20100525
  Serious: Yes (Hospitalization)
  Sender: FDA-Public Use
  Company Number: PHHY2009FR48736

PATIENT
  Sex: Male

DRUGS (3)
  1. RITALIN [Suspect]
     Indication: PSYCHOMOTOR HYPERACTIVITY
     Dosage: 60MG DAILY
     Dates: start: 20080101
  2. RITALIN [Suspect]
     Dosage: 600MG
  3. METHADONE HCL [Concomitant]

REACTIONS (2)
  - INJECTION SITE CELLULITIS [None]
  - INTENTIONAL DRUG MISUSE [None]
